FAERS Safety Report 9291603 (Version 1)
Quarter: 2013Q2

REPORT INFORMATION
  Report Type: Spontaneous
  Country: CH (occurrence: CH)
  Receive Date: 20130515
  Receipt Date: 20130515
  Transmission Date: 20140414
  Serious: Yes (Other)
  Sender: FDA-Public Use
  Company Number: CH-GLAXOSMITHKLINE-B0891649A

PATIENT
  Age: 37 Year
  Sex: Female

DRUGS (6)
  1. ZANTIC [Suspect]
     Indication: GASTROOESOPHAGEAL REFLUX DISEASE
     Dosage: 150MG PER DAY
     Route: 065
     Dates: start: 20130301, end: 20130303
  2. ATARAX [Suspect]
     Indication: URTICARIA
     Dosage: 25MG PER DAY
     Route: 048
     Dates: start: 20121217, end: 20130303
  3. BIOTINE [Suspect]
     Indication: PRODUCT USED FOR UNKNOWN INDICATION
     Dosage: 5MG PER DAY
     Route: 065
     Dates: start: 20130218, end: 20130303
  4. CETIRIZINE HYDROCHLORIDE [Suspect]
     Indication: URTICARIA
     Dosage: 10MG PER DAY
     Route: 065
     Dates: start: 20130105, end: 20130303
  5. TELFAST [Suspect]
     Indication: URTICARIA
     Route: 065
     Dates: start: 20130303, end: 20130304
  6. PASSIFLORA INCARNATA FLOWER [Suspect]
     Indication: PRODUCT USED FOR UNKNOWN INDICATION
     Route: 065

REACTIONS (1)
  - Exposure during pregnancy [Unknown]
